FAERS Safety Report 6259729-5 (Version None)
Quarter: 2009Q3

REPORT INFORMATION
  Report Type: 
  Country: None (occurrence: None)
  Receive Date: 20090708
  Receipt Date: 20090626
  Transmission Date: 20100115
  Serious: Yes (Other)
  Sender: FDA-Public Use
  Company Number: CL-PFIZER INC-2009234776

PATIENT

DRUGS (1)
  1. GENOTONORM [Suspect]
     Dates: end: 20090301

REACTIONS (1)
  - PARTIAL SEIZURES [None]
